FAERS Safety Report 15307478 (Version 3)
Quarter: 2018Q4

REPORT INFORMATION
  Report Type: Spontaneous
  Country: JP (occurrence: JP)
  Receive Date: 20180822
  Receipt Date: 20181019
  Transmission Date: 20190204
  Serious: Yes (Death, Life-Threatening)
  Sender: FDA-Public Use
  Company Number: JP-JNJFOC-20180812466

PATIENT
  Age: 59 Year
  Sex: Male
  Weight: 36.7 kg

DRUGS (17)
  1. FOLIAMIN [Concomitant]
     Active Substance: FOLIC ACID
     Route: 048
  2. EQUA [Concomitant]
     Active Substance: VILDAGLIPTIN
     Route: 048
  3. VALTREX [Concomitant]
     Active Substance: VALACYCLOVIR HYDROCHLORIDE
     Route: 048
  4. SAMSCA [Concomitant]
     Active Substance: TOLVAPTAN
     Indication: CARDIAC FAILURE
     Route: 048
     Dates: start: 20180623
  5. DIART [Concomitant]
     Active Substance: AZOSEMIDE
     Indication: EJECTION FRACTION DECREASED
     Route: 048
     Dates: start: 20180309
  6. METFORMIN HYDROCHLORIDE. [Concomitant]
     Active Substance: METFORMIN HYDROCHLORIDE
     Route: 048
  7. DIFLUCAN [Concomitant]
     Active Substance: FLUCONAZOLE
     Route: 048
  8. IMBRUVICA [Suspect]
     Active Substance: IBRUTINIB
     Indication: MANTLE CELL LYMPHOMA
     Route: 048
     Dates: start: 20180724, end: 20180806
  9. AMARYL [Concomitant]
     Active Substance: GLIMEPIRIDE
     Route: 048
  10. KINEDAK [Concomitant]
     Active Substance: EPALRESTAT
     Route: 048
  11. MEXITIL [Concomitant]
     Active Substance: MEXILETINE HYDROCHLORIDE
     Indication: CARDIOMEGALY
     Route: 048
     Dates: start: 20180209
  12. CARVEDILOL. [Concomitant]
     Active Substance: CARVEDILOL
     Indication: EJECTION FRACTION DECREASED
     Route: 048
     Dates: start: 20180309
  13. TAKECAB [Concomitant]
     Active Substance: VONOPRAZAN FUMURATE
     Route: 048
  14. BACTRAMIN [Concomitant]
     Active Substance: SULFAMETHOXAZOLE\TRIMETHOPRIM
     Route: 048
  15. BISOLVON [Concomitant]
     Active Substance: BROMHEXINE HYDROCHLORIDE
     Route: 048
  16. DEBERZA [Concomitant]
     Active Substance: TOFOGLIFLOZIN
     Route: 048
  17. MEXITIL [Concomitant]
     Active Substance: MEXILETINE HYDROCHLORIDE
     Indication: CARDIOMEGALY
     Route: 048

REACTIONS (2)
  - Pulmonary alveolar haemorrhage [Fatal]
  - Cardiac failure [Fatal]

NARRATIVE: CASE EVENT DATE: 20180806
